FAERS Safety Report 8584049-3 (Version None)
Quarter: 2012Q3

REPORT INFORMATION
  Report Type: 
  Country: None (occurrence: None)
  Receive Date: 20120810
  Receipt Date: 20120725
  Transmission Date: 20120928
  Serious: No
  Sender: FDA-Public Use
  Company Number: US-009507513-1208USA000547

PATIENT

DRUGS (2)
  1. PEG-INTRON [Suspect]
     Dosage: UNK
     Dates: end: 20101201
  2. RIBAVIRIN (+) INTERFERON ALFA-2B [Suspect]
     Dosage: UNK
     Route: 048
     Dates: end: 20101201

REACTIONS (1)
  - MATERNAL EXPOSURE BEFORE PREGNANCY [None]
